FAERS Safety Report 18420694 (Version 3)
Quarter: 2020Q4

REPORT INFORMATION
  Report Type: Report from Study
  Country: US (occurrence: US)
  Receive Date: 20201023
  Receipt Date: 20201030
  Transmission Date: 20210114
  Serious: Yes (Hospitalization)
  Sender: FDA-Public Use
  Company Number: US-GILEAD-2020-0500015

PATIENT
  Age: 77 Year
  Sex: Male

DRUGS (61)
  1. FLUDARABINE [Suspect]
     Active Substance: FLUDARABINE PHOSPHATE
     Indication: BONE MARROW CONDITIONING REGIMEN
     Dosage: 30
     Route: 042
     Dates: start: 20200930, end: 20200930
  2. FOLIC ACID. [Concomitant]
     Active Substance: FOLIC ACID
     Dosage: DAILY
     Dates: start: 20201005
  3. BACITRACIN. [Concomitant]
     Active Substance: BACITRACIN
     Dosage: TWICE DAILY
     Route: 061
     Dates: start: 20201008
  4. SODIUM PHOSPHATE [Concomitant]
     Active Substance: SODIUM PHOSPHATE
     Dosage: AS NECESSARY
     Dates: start: 20201015
  5. FENTANYL. [Concomitant]
     Active Substance: FENTANYL
     Dosage: TWICE DAILY
     Dates: start: 20200929, end: 20200929
  6. PROCHLORPERAZINE. [Concomitant]
     Active Substance: PROCHLORPERAZINE
     Dosage: ONCE
     Dates: start: 20201013, end: 20201013
  7. VORICONAZOLE. [Concomitant]
     Active Substance: VORICONAZOLE
     Dosage: TWICE DAILY
     Dates: start: 20201005
  8. POTASSIUM CHLORIDE. [Concomitant]
     Active Substance: POTASSIUM CHLORIDE
     Dosage: ONCE
     Dates: start: 20201013, end: 20201013
  9. CALCIUM CARBONATE. [Concomitant]
     Active Substance: CALCIUM CARBONATE
     Dosage: DAILY
     Dates: start: 20201013
  10. LACTOBACILLUS BIFIDUS [Concomitant]
     Active Substance: BIFIDOBACTERIUM BIFIDUM
     Dosage: DAILY
     Dates: start: 20170307
  11. SODIUM CHLORIDE 0.9% [Concomitant]
     Active Substance: SODIUM CHLORIDE
     Dosage: TWICE DAILY
     Dates: start: 20200930, end: 20201002
  12. ALLOPURINOL. [Concomitant]
     Active Substance: ALLOPURINOL
     Dosage: DAILY
     Dates: start: 20201005, end: 20201012
  13. CIPROFLOXACIN. [Concomitant]
     Active Substance: CIPROFLOXACIN
     Dosage: ONCE
     Dates: start: 20201010, end: 20201010
  14. DIPHENHYDRAMINE. [Concomitant]
     Active Substance: DIPHENHYDRAMINE
     Dosage: ONCE
     Dates: start: 20201005, end: 20201005
  15. POTASSIUM CHLORIDE. [Concomitant]
     Active Substance: POTASSIUM CHLORIDE
     Dosage: ONCE
     Dates: start: 20201011, end: 20201011
  16. CEFEPIME [Concomitant]
     Active Substance: CEFEPIME HYDROCHLORIDE
     Dosage: THREE TIMES DAILY
     Dates: start: 20201011, end: 20201013
  17. MAGNESIUM SULFATE. [Concomitant]
     Active Substance: MAGNESIUM SULFATE
     Dosage: ONCE
     Dates: start: 20201010, end: 20201010
  18. HYDROMORPHONE [Concomitant]
     Active Substance: HYDROMORPHONE
     Dosage: ONCE
     Dates: start: 20201012, end: 20201012
  19. DEXAMETHASONE. [Concomitant]
     Active Substance: DEXAMETHASONE
     Dosage: FOUR TIMES DAILY
     Dates: start: 20201019, end: 20201019
  20. BLOOD CELLS, PACKED HUMAN [Concomitant]
     Active Substance: HUMAN RED BLOOD CELL
     Dosage: ONCE
     Dates: start: 20201013, end: 20201013
  21. FLUDARABINE [Suspect]
     Active Substance: FLUDARABINE PHOSPHATE
     Dosage: 30
     Route: 042
     Dates: start: 20201001, end: 20201001
  22. UTOMILUMAB [Suspect]
     Active Substance: UTOMILUMAB
     Indication: B-CELL UNCLASSIFIABLE LYMPHOMA HIGH GRADE
     Dosage: 200
     Route: 042
     Dates: start: 20201006, end: 20201006
  23. SODIUM CHLORIDE 0.9% [Concomitant]
     Active Substance: SODIUM CHLORIDE
     Dosage: DAILY
     Dates: start: 20201005, end: 20201008
  24. SODIUM CHLORIDE 0.9% [Concomitant]
     Active Substance: SODIUM CHLORIDE
     Dosage: ONCE
     Dates: start: 20201010, end: 20201010
  25. POTASSIUM CHLORIDE. [Concomitant]
     Active Substance: POTASSIUM CHLORIDE
     Dosage: ONCE
     Dates: start: 20201007, end: 20201007
  26. TOCILIZUMAB. [Concomitant]
     Active Substance: TOCILIZUMAB
     Dosage: DAILY
     Dates: start: 20201011, end: 20201012
  27. CYCLOPHOSPHAMIDE. [Suspect]
     Active Substance: CYCLOPHOSPHAMIDE
     Dosage: 500
     Route: 042
     Dates: start: 20201001, end: 20201001
  28. FLUDARABINE [Suspect]
     Active Substance: FLUDARABINE PHOSPHATE
     Dosage: 30
     Route: 042
     Dates: start: 20201002, end: 20201002
  29. DOCUSATE [Concomitant]
     Active Substance: DOCUSATE
     Dosage: AS NECESSARY
     Dates: start: 20200903
  30. CEFAZOLIN [Concomitant]
     Active Substance: CEFAZOLIN
     Dosage: ONCE
     Dates: start: 20200929, end: 20200929
  31. SODIUM CHLORIDE 0.9% [Concomitant]
     Active Substance: SODIUM CHLORIDE
     Dosage: AS NECESSARY
     Dates: start: 20201012, end: 20201012
  32. ACETAMINOPHEN. [Concomitant]
     Active Substance: ACETAMINOPHEN
     Dosage: TWICE DAILY
     Dates: start: 20201011, end: 20201011
  33. ACYCLOVIR [ACICLOVIR] [Concomitant]
     Active Substance: ACYCLOVIR
     Dosage: TWICE DAILY
     Dates: start: 20201005
  34. CIPROFLOXACIN. [Concomitant]
     Active Substance: CIPROFLOXACIN
     Dosage: DAILY
     Dates: start: 20201014
  35. POTASSIUM CHLORIDE. [Concomitant]
     Active Substance: POTASSIUM CHLORIDE
     Dosage: AS NECESSARY
     Dates: start: 20201015
  36. SODIUM PHOSPHATE [Concomitant]
     Active Substance: SODIUM PHOSPHATE
     Dosage: ONCE
     Dates: start: 20201014, end: 20201014
  37. AXICABTAGENE CILOLEUCEL [Suspect]
     Active Substance: AXICABTAGENE CILOLEUCEL
     Indication: B-CELL UNCLASSIFIABLE LYMPHOMA HIGH GRADE
     Dosage: 68
     Route: 042
     Dates: start: 20201005, end: 20201005
  38. CYCLOPHOSPHAMIDE. [Suspect]
     Active Substance: CYCLOPHOSPHAMIDE
     Dosage: 500
     Route: 042
     Dates: start: 20201002, end: 20201002
  39. ASPIRIN [ACETYLSALICYLIC ACID] [Concomitant]
     Active Substance: ASPIRIN
     Dosage: DAILY
  40. MIDAZOLAM. [Concomitant]
     Active Substance: MIDAZOLAM
     Dosage: AS NECESSARY
     Dates: start: 20200929, end: 20200929
  41. PALONOSETRON. [Concomitant]
     Active Substance: PALONOSETRON HYDROCHLORIDE
     Dosage: ONCE
     Dates: start: 20200930, end: 20200930
  42. ACETAMINOPHEN. [Concomitant]
     Active Substance: ACETAMINOPHEN
     Dosage: ONCE
     Dates: start: 20201005, end: 20201005
  43. CIPROFLOXACIN. [Concomitant]
     Active Substance: CIPROFLOXACIN
     Dosage: TWICE DAILY
     Dates: start: 20201005, end: 20201009
  44. FERROUS FUMARATE [Concomitant]
     Active Substance: FERROUS FUMARATE
     Dosage: EVERY OTHER DAY
     Dates: start: 20200526
  45. POLYETHYLENE GLYCOL 3350. [Concomitant]
     Active Substance: POLYETHYLENE GLYCOL 3350
     Dosage: DAILY
     Dates: start: 20200903
  46. PROCHLORPERAZINE. [Concomitant]
     Active Substance: PROCHLORPERAZINE
     Dosage: DAILY
     Dates: start: 20200930, end: 20201002
  47. SODIUM CHLORIDE 0.9% [Concomitant]
     Active Substance: SODIUM CHLORIDE
     Dosage: AS NECESSARY
     Dates: start: 20201015
  48. ACETAMINOPHEN. [Concomitant]
     Active Substance: ACETAMINOPHEN
     Dosage: ONCE
     Dates: start: 20201010, end: 20201010
  49. ACETAMINOPHEN. [Concomitant]
     Active Substance: ACETAMINOPHEN
     Dosage: ONCE
     Dates: start: 20201012, end: 20201012
  50. CEFEPIME [Concomitant]
     Active Substance: CEFEPIME HYDROCHLORIDE
     Dosage: TWICE DAILY
     Dates: start: 20201014, end: 20201014
  51. DEXAMETHASONE. [Concomitant]
     Active Substance: DEXAMETHASONE
     Dosage: 10 MG, Q6H
     Route: 042
  52. DEXAMETHASONE. [Concomitant]
     Active Substance: DEXAMETHASONE
     Dosage: ONCE
     Dates: start: 20201020, end: 20201020
  53. CYCLOPHOSPHAMIDE. [Suspect]
     Active Substance: CYCLOPHOSPHAMIDE
     Indication: BONE MARROW CONDITIONING REGIMEN
     Dosage: 500
     Route: 042
     Dates: start: 20200930, end: 20200930
  54. METOPROLOL. [Concomitant]
     Active Substance: METOPROLOL
     Dosage: DAILY
  55. SODIUM CHLORIDE 0.9% [Concomitant]
     Active Substance: SODIUM CHLORIDE
     Dosage: TWICE DAILY
     Dates: start: 20201011, end: 20201011
  56. LEVETIRACETAM. [Concomitant]
     Active Substance: LEVETIRACETAM
     Dosage: ONCE
     Dates: start: 20201004, end: 20201004
  57. LEVETIRACETAM. [Concomitant]
     Active Substance: LEVETIRACETAM
     Dosage: TWICE DAILY
     Dates: start: 20201005
  58. CEFEPIME [Concomitant]
     Active Substance: CEFEPIME HYDROCHLORIDE
     Dosage: ONCE
     Dates: start: 20201010, end: 20201010
  59. DEXAMETHASONE. [Concomitant]
     Active Substance: DEXAMETHASONE
     Dosage: ONCE
     Dates: start: 20201012, end: 20201012
  60. DEXAMETHASONE. [Concomitant]
     Active Substance: DEXAMETHASONE
     Dosage: TWICE DAILY
     Dates: start: 20201018, end: 20201018
  61. DOXAZOSIN [Concomitant]
     Active Substance: DOXAZOSIN MESYLATE
     Dosage: DAILY
     Dates: start: 20201014

REACTIONS (2)
  - Somnolence [Recovered/Resolved]
  - Aphasia [Recovered/Resolved]

NARRATIVE: CASE EVENT DATE: 20201018
